FAERS Safety Report 18194189 (Version 1)
Quarter: 2020Q3

REPORT INFORMATION
  Report Type: Spontaneous
  Country: US (occurrence: US)
  Receive Date: 20200825
  Receipt Date: 20200825
  Transmission Date: 20201103
  Serious: No
  Sender: FDA-Public Use
  Company Number: US-TEVA-2020-US-1817799

PATIENT
  Sex: Female

DRUGS (2)
  1. PROTONIX [Suspect]
     Active Substance: PANTOPRAZOLE SODIUM
     Indication: GASTROINTESTINAL DISORDER
     Route: 065
  2. SUCRALFATE. [Suspect]
     Active Substance: SUCRALFATE
     Indication: GASTROINTESTINAL DISORDER
     Dosage: 4 GRAM DAILY;
     Route: 048
     Dates: start: 20190724

REACTIONS (6)
  - Drug ineffective [Unknown]
  - Malaise [Unknown]
  - Pain in extremity [Unknown]
  - Gastrointestinal disorder [Unknown]
  - Balance disorder [Unknown]
  - Treatment noncompliance [Unknown]
